FAERS Safety Report 7968366-3 (Version None)
Quarter: 2011Q4

REPORT INFORMATION
  Report Type: 
  Country: None (occurrence: None)
  Receive Date: 20111209
  Receipt Date: 20111205
  Transmission Date: 20120403
  Serious: Yes (Death)
  Sender: FDA-Public Use
  Company Number: US-CELGENEUS-163-21880-11101363

PATIENT
  Sex: Male
  Weight: 79.45 kg

DRUGS (7)
  1. VITAMIN B-12 [Concomitant]
     Route: 065
  2. VELCADE [Concomitant]
     Route: 065
  3. ARANESP [Concomitant]
     Route: 065
  4. ZOMETA [Concomitant]
     Route: 065
  5. DEXAMETHASONE [Concomitant]
     Dosage: 4 MILLIGRAM
     Route: 065
  6. PERCOCET [Concomitant]
     Route: 065
  7. REVLIMID [Suspect]
     Indication: MULTIPLE MYELOMA
     Dosage: 10 MILLIGRAM
     Route: 048
     Dates: start: 20090301, end: 20110215

REACTIONS (1)
  - MULTIPLE MYELOMA [None]
